FAERS Safety Report 15206585 (Version 2)
Quarter: 2018Q3

REPORT INFORMATION
  Report Type: Spontaneous
  Country: US (occurrence: US)
  Receive Date: 20180727
  Receipt Date: 20180906
  Transmission Date: 20181010
  Serious: No
  Sender: FDA-Public Use
  Company Number: US-PFIZER INC-2018302144

PATIENT
  Age: 9 Year
  Sex: Male
  Weight: 36.55 kg

DRUGS (1)
  1. QUILLICHEW ER [Suspect]
     Active Substance: METHYLPHENIDATE HYDROCHLORIDE
     Indication: SENSORY PROCESSING DISORDER
     Dosage: 20 MG, 2X/DAY, (1 CHEWABLE TABLET BY MOUTH TWICE A DAY. TAKES AT 7:30 AND 12:30)
     Route: 048
     Dates: start: 20180320, end: 2018

REACTIONS (8)
  - Disturbance in attention [Recovered/Resolved]
  - Restlessness [Recovered/Resolved]
  - Drug ineffective for unapproved indication [Recovered/Resolved]
  - Product use in unapproved indication [Recovered/Resolved]
  - Emotional disorder [Recovered/Resolved]
  - Staring [Recovered/Resolved]
  - Social avoidant behaviour [Recovered/Resolved]
  - Fall [Recovered/Resolved]

NARRATIVE: CASE EVENT DATE: 201803
